FAERS Safety Report 16469486 (Version 1)
Quarter: 2019Q2

REPORT INFORMATION
  Report Type: Spontaneous
  Country: TW (occurrence: TW)
  Receive Date: 20190624
  Receipt Date: 20190624
  Transmission Date: 20190711
  Serious: Yes (Death)
  Sender: FDA-Public Use
  Company Number: TW-BIOCRYST PHARMACEUTICALS, INC.-2019BCR00165

PATIENT
  Age: 39 Year
  Sex: Male

DRUGS (1)
  1. RAPIVAB [Suspect]
     Active Substance: PERAMIVIR
     Indication: INFLUENZA
     Dosage: 600 MG, 1X/DAY
     Route: 042
     Dates: start: 201905, end: 201905

REACTIONS (1)
  - Pneumonia [Fatal]

NARRATIVE: CASE EVENT DATE: 201905
